FAERS Safety Report 7937558-1 (Version None)
Quarter: 2011Q4

REPORT INFORMATION
  Report Type: 
  Country: None (occurrence: None)
  Receive Date: 20111123
  Receipt Date: 20111121
  Transmission Date: 20120403
  Serious: Yes (Hospitalization, Other)
  Sender: FDA-Public Use
  Company Number: CZ-ABBOTT-06P-217-0342655-00

PATIENT
  Sex: Female

DRUGS (9)
  1. CELEBREX [Concomitant]
     Indication: RHEUMATOID ARTHRITIS
     Route: 048
  2. MEDROL [Concomitant]
     Indication: RHEUMATOID ARTHRITIS
     Route: 048
  3. OMEPRAZOLE [Concomitant]
     Indication: GASTRIC ULCER
     Route: 048
  4. CALCIFEROL FORTE [Concomitant]
     Indication: PRODUCT USED FOR UNKNOWN INDICATION
     Route: 030
  5. HUMIRA [Suspect]
     Indication: RHEUMATOID ARTHRITIS
     Route: 058
     Dates: start: 20041020, end: 20060809
  6. LETROX [Concomitant]
     Indication: HYPOTHYROIDISM
     Route: 048
  7. MAXI-KALZ [Concomitant]
     Indication: PRODUCT USED FOR UNKNOWN INDICATION
     Route: 048
  8. TORVACARD 20 [Concomitant]
     Indication: HYPERCHOLESTEROLAEMIA
     Route: 048
  9. VENORUTON [Concomitant]
     Indication: PRODUCT USED FOR UNKNOWN INDICATION
     Route: 048

REACTIONS (6)
  - CELLULITIS [None]
  - ANIMAL SCRATCH [None]
  - KNEE ARTHROPLASTY [None]
  - ABSCESS [None]
  - PRURITUS [None]
  - BODY TEMPERATURE INCREASED [None]
